FAERS Safety Report 10479179 (Version 1)
Quarter: 2014Q3

REPORT INFORMATION
  Report Type: Spontaneous
  Country: GB (occurrence: GB)
  Receive Date: 20140926
  Receipt Date: 20140926
  Transmission Date: 20150326
  Serious: Yes (Hospitalization)
  Sender: FDA-Public Use
  Company Number: PHHY2014GB124783

PATIENT
  Age: 66 Year
  Sex: Male

DRUGS (1)
  1. CALCIUM FOLINATE [Suspect]
     Active Substance: LEUCOVORIN CALCIUM
     Indication: CHEMOTHERAPY
     Dosage: 500 ML,
     Route: 042
     Dates: start: 20140305

REACTIONS (1)
  - Local swelling [Unknown]

NARRATIVE: CASE EVENT DATE: 20140305
